FAERS Safety Report 5560967-5 (Version None)
Quarter: 2007Q4

REPORT INFORMATION
  Report Type: 
  Country: None (occurrence: None)
  Receive Date: 20071215
  Receipt Date: 20071129
  Transmission Date: 20080405
  Serious: No
  Sender: FDA-Public Use
  Company Number: US-ABBOTT-07P-163-0427263-00

PATIENT
  Sex: Male
  Weight: 100 kg

DRUGS (2)
  1. HUMIRA [Suspect]
     Indication: RHEUMATOID ARTHRITIS
     Dosage: PFS
     Route: 058
     Dates: start: 20050101, end: 20060101
  2. HUMIRA [Suspect]
     Dosage: PEN
     Route: 058
     Dates: start: 20071101

REACTIONS (2)
  - DRUG INEFFECTIVE [None]
  - OVERDOSE [None]
